FAERS Safety Report 5530164-8 (Version None)
Quarter: 2007Q4

REPORT INFORMATION
  Report Type: 
  Country: None (occurrence: None)
  Receive Date: 20071130
  Receipt Date: 20071120
  Transmission Date: 20080405
  Serious: Yes (Death, Hospitalization)
  Sender: FDA-Public Use
  Company Number: GB-BAXTER-2007BH008438

PATIENT
  Age: 53 Year
  Sex: Female

DRUGS (3)
  1. EXTRANEAL [Suspect]
     Indication: PERITONEAL DIALYSIS
     Route: 033
     Dates: start: 20070910, end: 20071008
  2. DIANEAL [Concomitant]
     Indication: PERITONEAL DIALYSIS
     Route: 033
     Dates: start: 20070910
  3. PHYSIOSOL IN PLASTIC CONTAINER [Concomitant]
     Indication: PERITONEAL DIALYSIS
     Route: 033
     Dates: start: 20070910

REACTIONS (5)
  - DEATH [None]
  - FUNGAL PERITONITIS [None]
  - HYPOTENSION [None]
  - NAUSEA [None]
  - VOMITING [None]
